FAERS Safety Report 5445160-9 (Version None)
Quarter: 2007Q3

REPORT INFORMATION
  Report Type: 
  Country: None (occurrence: None)
  Receive Date: 20070730
  Receipt Date: 20070307
  Transmission Date: 20080115
  Serious: Yes (Other)
  Sender: FDA-Public Use
  Company Number: 237921

PATIENT
  Age: 57 Year
  Sex: Female

DRUGS (2)
  1. RITUXAN [Suspect]
     Indication: NON-HODGKIN'S LYMPHOMA
     Dosage: INTRAVENOUS
     Route: 042
     Dates: start: 20070228
  2. PREMEDICATION DRUGS (ANESTHETIC PREMEDICATION NOS) [Concomitant]

REACTIONS (4)
  - CHILLS [None]
  - FLUSHING [None]
  - NAUSEA [None]
  - PAIN [None]
